FAERS Safety Report 9704963 (Version 1)
Quarter: 2013Q4

REPORT INFORMATION
  Report Type: Spontaneous
  Country: JP (occurrence: JP)
  Receive Date: 20131122
  Receipt Date: 20131122
  Transmission Date: 20140711
  Serious: Yes (Hospitalization)
  Sender: FDA-Public Use
  Company Number: JP-ASTELLAS-2013JP012798

PATIENT
  Age: 87 Year
  Sex: Female

DRUGS (3)
  1. VESICARE [Suspect]
     Dosage: 5 MG, UID/QD
     Route: 048
  2. VESICARE [Suspect]
     Dosage: 5 MG, UID/QD
     Route: 048
     Dates: end: 2013
  3. ANTIBIOTICS [Concomitant]
     Indication: BACTERIAL INFECTION
     Route: 065

REACTIONS (2)
  - Fracture [Unknown]
  - Cystitis noninfective [Unknown]
